FAERS Safety Report 4994350-8 (Version None)
Quarter: 2006Q2

REPORT INFORMATION
  Report Type: 
  Country: None (occurrence: None)
  Receive Date: 20060503
  Receipt Date: 20060418
  Transmission Date: 20061013
  Serious: Yes (Other)
  Sender: FDA-Public Use
  Company Number: US017362

PATIENT
  Sex: 0

DRUGS (2)
  1. PROVIGIL [Suspect]
     Indication: NARCOLEPSY
  2. PROVIGIL [Suspect]
     Indication: SOMNOLENCE

REACTIONS (1)
  - SCHIZOPHRENIA [None]
